FAERS Safety Report 22613695 (Version 3)
Quarter: 2023Q4

REPORT INFORMATION
  Report Type: Other
  Country: US (occurrence: None)
  Receive Date: 20230619
  Receipt Date: 20231128
  Transmission Date: 20240110
  Serious: No
  Sender: FDA-Public Use
  Company Number: US-ROCHE-3132225

PATIENT
  Age: 34 Year
  Sex: Female

DRUGS (3)
  1. OCREVUS [Suspect]
     Active Substance: OCRELIZUMAB
     Indication: Relapsing-remitting multiple sclerosis
     Dosage: 600 MG EVERY 6 MONTHS ?PREVIOUS DATE OF TREATMENT : 28/JUN/2018
     Route: 042
     Dates: start: 20171215
  2. OCREVUS [Suspect]
     Active Substance: OCRELIZUMAB
     Indication: Relapsing multiple sclerosis
     Dosage: LAST DATE OF TREATMENT 28/JUN/2022
     Route: 042
  3. ATIVAN [Concomitant]
     Active Substance: LORAZEPAM

REACTIONS (9)
  - Maternal exposure before pregnancy [Unknown]
  - Illness [Unknown]
  - Muscular weakness [Unknown]
  - Maternal exposure during breast feeding [Unknown]
  - Chills [Unknown]
  - Pyrexia [Unknown]
  - Urinary tract infection [Unknown]
  - COVID-19 [Unknown]
  - Condition aggravated [Unknown]

NARRATIVE: CASE EVENT DATE: 20220501
